FAERS Safety Report 5823281-6 (Version None)
Quarter: 2008Q3

REPORT INFORMATION
  Report Type: 
  Country: None (occurrence: None)
  Receive Date: 20080725
  Receipt Date: 20080718
  Transmission Date: 20090109
  Serious: Yes (Other)
  Sender: FDA-Public Use
  Company Number: US-ASTRAZENECA-2008UW14415

PATIENT
  Age: 51 Year
  Sex: Male
  Weight: 86.2 kg

DRUGS (5)
  1. IRESSA [Suspect]
     Indication: LUNG NEOPLASM MALIGNANT
     Route: 048
     Dates: start: 20030101
  2. ZOLOFT [Concomitant]
  3. DILAUDID [Concomitant]
  4. VITAMIN TAB [Concomitant]
  5. CALCIUM [Concomitant]

REACTIONS (2)
  - AMNESIA [None]
  - RIB FRACTURE [None]
